FAERS Safety Report 20493764 (Version 3)
Quarter: 2022Q1

REPORT INFORMATION
  Report Type: Spontaneous
  Country: None (occurrence: ES)
  Receive Date: 20220221
  Receipt Date: 20220328
  Transmission Date: 20220423
  Serious: Yes (Hospitalization)
  Sender: FDA-Public Use
  Company Number: ES-AKCEA THERAPEUTICS, INC.-2022IS001195

PATIENT
  Sex: Male

DRUGS (2)
  1. TEGSEDI [Suspect]
     Active Substance: INOTERSEN SODIUM
     Indication: Hereditary neuropathic amyloidosis
     Route: 065
  2. DEVICE [Suspect]
     Active Substance: DEVICE

REACTIONS (9)
  - Haemolytic anaemia [Recovered/Resolved]
  - Anisocytosis [Unknown]
  - Polychromasia [Unknown]
  - Red blood cell spherocytes present [Unknown]
  - Bilirubin conjugated abnormal [Unknown]
  - Blood bilirubin abnormal [Unknown]
  - Reticulocyte count abnormal [Unknown]
  - Reticulocyte percentage abnormal [Unknown]
  - Coombs direct test positive [Unknown]

NARRATIVE: CASE EVENT DATE: 20211127
